FAERS Safety Report 7546648-7 (Version None)
Quarter: 2011Q2

REPORT INFORMATION
  Report Type: 
  Country: None (occurrence: None)
  Receive Date: 20110524
  Receipt Date: 20110302
  Transmission Date: 20111010
  Serious: No
  Sender: FDA-Public Use
  Company Number: 028536

PATIENT
  Sex: Female
  Weight: 65.8 kg

DRUGS (4)
  1. PRILOSEC [Concomitant]
  2. CIMZIA [Suspect]
     Indication: CROHN'S DISEASE
     Dosage: (2 SHOTS SUBCUTANEOUS)
     Route: 058
     Dates: start: 20110129
  3. MERCAPTOPURINE [Concomitant]
  4. ERGOALCIFEROL [Concomitant]

REACTIONS (7)
  - NAUSEA [None]
  - PARAESTHESIA [None]
  - DECREASED APPETITE [None]
  - HYPERVENTILATION [None]
  - PRESYNCOPE [None]
  - DIZZINESS [None]
  - VISION BLURRED [None]
